FAERS Safety Report 6697642-X (Version None)
Quarter: 2010Q2

REPORT INFORMATION
  Report Type: 
  Country: None (occurrence: None)
  Receive Date: 20100423
  Receipt Date: 20100412
  Transmission Date: 20101027
  Serious: Yes (Death, Other)
  Sender: FDA-Public Use
  Company Number: AXC-2010-000098

PATIENT
  Age: 50 Year
  Sex: Male

DRUGS (4)
  1. MESALAMINE [Suspect]
     Indication: CROHN'S DISEASE
     Dosage: 2000 MG, QD
  2. MERCAPTOPURINE [Suspect]
     Indication: CROHN'S DISEASE
     Dosage: 100 MG, QD
  3. HYOSCYAMINE (HYOSCYAMINE) UNKNOWN [Suspect]
     Indication: CROHN'S DISEASE
     Dosage: 1.47 MG, QD
  4. ADALIMUMAB (ADALIMUMAB) [Suspect]
     Indication: CROHN'S DISEASE
     Dosage: 40 MG, EVERY 2 WEEKS

REACTIONS (39)
  - ABDOMINAL PAIN [None]
  - ANAEMIA [None]
  - ARTHRALGIA [None]
  - BIOPSY LIP ABNORMAL [None]
  - BIOPSY LUNG ABNORMAL [None]
  - BIOPSY SKIN ABNORMAL [None]
  - BLOOD ALKALINE PHOSPHATASE INCREASED [None]
  - BONE SCAN ABNORMAL [None]
  - CARDIAC MURMUR [None]
  - CHILLS [None]
  - COCCIDIOIDOMYCOSIS [None]
  - CSF TEST ABNORMAL [None]
  - CULTURE POSITIVE [None]
  - DISEASE PROGRESSION [None]
  - HEADACHE [None]
  - HISTOLOGY NORMAL [None]
  - HYPOCALCAEMIA [None]
  - HYPONATRAEMIA [None]
  - JOINT SWELLING [None]
  - JOINT WARMTH [None]
  - LUNG INFILTRATION [None]
  - LUNG NEOPLASM [None]
  - LYMPHADENOPATHY [None]
  - MENINGITIS COCCIDIOIDES [None]
  - PLEURAL EFFUSION [None]
  - POLYDIPSIA [None]
  - RENAL FAILURE ACUTE [None]
  - RESPIRATORY RATE INCREASED [None]
  - SEROLOGY POSITIVE [None]
  - SKIN LESION [None]
  - SPLEEN DISORDER [None]
  - SPLENIC CALCIFICATION [None]
  - SPLENOMEGALY [None]
  - SYNOVITIS [None]
  - TACHYPNOEA [None]
  - THYROID NEOPLASM [None]
  - TINNITUS [None]
  - VISION BLURRED [None]
  - WEIGHT DECREASED [None]
